FAERS Safety Report 8795931 (Version 1)
Quarter: 2012Q4

REPORT INFORMATION
  Report Type: 
  Country: DE (occurrence: DE)
  Receive Date: 20120919
  Receipt Date: 20120919
  Transmission Date: 20130627
  Serious: Yes (Other)
  Sender: FDA-Public Use
  Company Number: DE-ELI_LILLY_AND_COMPANY-DE201209002508

PATIENT
  Sex: Female

DRUGS (2)
  1. FORSTEO [Suspect]
     Indication: OSTEOPOROSIS
     Dosage: UNK, qd
     Route: 058
     Dates: start: 20120611, end: 20120830
  2. ANTIHYPERTENSIVES [Concomitant]

REACTIONS (3)
  - Plasmacytoma [Not Recovered/Not Resolved]
  - Pallor [Unknown]
  - Blood count abnormal [Unknown]
